FAERS Safety Report 4687578-8 (Version None)
Quarter: 2005Q2

REPORT INFORMATION
  Report Type: 
  Country: None (occurrence: None)
  Receive Date: 20050610
  Receipt Date: 20050531
  Transmission Date: 20051028
  Serious: Yes (Hospitalization, Other)
  Sender: FDA-Public Use
  Company Number: GR-BRISTOL-MYERS SQUIBB COMPANY-12989141

PATIENT
  Age: 60 Year
  Sex: Male

DRUGS (1)
  1. PROCEF TABS [Suspect]
     Indication: ARTHROPOD BITE
     Route: 048
     Dates: start: 20050523, end: 20050523

REACTIONS (1)
  - ANAPHYLACTIC SHOCK [None]
